FAERS Safety Report 9784974 (Version 1)
Quarter: 2013Q4

REPORT INFORMATION
  Report Type: Spontaneous
  Country: JP (occurrence: JP)
  Receive Date: 20131227
  Receipt Date: 20131227
  Transmission Date: 20140711
  Serious: Yes (Other)
  Sender: FDA-Public Use
  Company Number: JP-BRISTOL-MYERS SQUIBB COMPANY-19931435

PATIENT
  Sex: Female

DRUGS (1)
  1. BYETTA PEN DISPOSABLE [Suspect]
     Dosage: BYETTA SUBCUTANEOUS INJECTION 5MG PEN
     Route: 058

REACTIONS (3)
  - Drug ineffective [Unknown]
  - Abortion induced [Unknown]
  - Pregnancy [Recovered/Resolved]
